FAERS Safety Report 6101212-1 (Version None)
Quarter: 2009Q1

REPORT INFORMATION
  Report Type: 
  Country: None (occurrence: None)
  Receive Date: 20090220
  Receipt Date: 20090209
  Transmission Date: 20090719
  Serious: Yes (Death, Other)
  Sender: FDA-Public Use
  Company Number: M-09-501

PATIENT
  Age: 72 Year
  Sex: Male
  Weight: 80 kg

DRUGS (12)
  1. PROFILNINE SD [Suspect]
     Indication: PROCOAGULANT THERAPY
     Dosage: 4020 IU, ONCE, IV
     Route: 042
     Dates: start: 20080916
  2. DESMOPRESSIN ACETATE [Suspect]
     Dosage: 24, UG, IV
     Route: 042
     Dates: start: 20080916
  3. PROFILNINE SD [Suspect]
     Indication: PROCOAGULANT THERAPY
     Dosage: 4020 IU, ONCE, IV
     Route: 042
     Dates: start: 20080916
  4. DESMOPRESSIN ACETATE [Suspect]
     Dosage: 24, UG, IV
     Route: 042
     Dates: start: 20080916
  5. WARFARIN SODIUM [Concomitant]
  6. GABAPENTIN [Concomitant]
  7. PRAVASTATIN [Concomitant]
  8. DIPYRIDAMOLE-ASA [Concomitant]
  9. OMEPRAZOLE [Concomitant]
  10. METOPROLOL TARTRATE [Concomitant]
  11. NIFEDIPINE [Concomitant]
  12. INSULIN [Concomitant]

REACTIONS (7)
  - BLOOD DISORDER [None]
  - ECHOCARDIOGRAM ABNORMAL [None]
  - GENERAL PHYSICAL HEALTH DETERIORATION [None]
  - HAEMODYNAMIC INSTABILITY [None]
  - HEART RATE DECREASED [None]
  - HYPERCOAGULATION [None]
  - INTRACARDIAC THROMBUS [None]
